FAERS Safety Report 9567812 (Version 1)
Quarter: 2013Q3

REPORT INFORMATION
  Report Type: Spontaneous
  Country: US (occurrence: US)
  Receive Date: 20130930
  Receipt Date: 20130930
  Transmission Date: 20140515
  Serious: No
  Sender: FDA-Public Use
  Company Number: US-AMGEN-USASP2013030278

PATIENT
  Age: 37 Year
  Sex: Female

DRUGS (4)
  1. ENBREL [Suspect]
     Indication: RHEUMATOID ARTHRITIS
     Dosage: UNK UNK, QWK
     Dates: start: 20130422
  2. PLAQUENIL                          /00072602/ [Concomitant]
     Dosage: 200 UNK, BID
  3. PREDNISOLONE [Concomitant]
     Dosage: 10 MG, QD
  4. MOBIC [Concomitant]
     Dosage: 10 MG, QD

REACTIONS (1)
  - Pain [Not Recovered/Not Resolved]
